FAERS Safety Report 4964894-3 (Version None)
Quarter: 2006Q1

REPORT INFORMATION
  Report Type: 
  Country: None (occurrence: None)
  Receive Date: 20060207
  Receipt Date: 20050412
  Transmission Date: 20060701
  Serious: Yes (Hospitalization)
  Sender: FDA-Public Use
  Company Number: 241545

PATIENT
  Age: 63 Year
  Sex: Female
  Weight: 63.5 kg

DRUGS (4)
  1. NOVOLOG [Suspect]
     Indication: INSULIN-REQUIRING TYPE II DIABETES MELLITUS
     Dosage: SEE IMAGE
     Route: 058
     Dates: start: 20030101, end: 20041022
  2. NOVOLOG [Suspect]
     Indication: INSULIN-REQUIRING TYPE II DIABETES MELLITUS
     Dosage: SEE IMAGE
     Route: 058
     Dates: start: 20041023
  3. LANTUS [Concomitant]
  4. SYRINGES [Concomitant]

REACTIONS (1)
  - BLOOD GLUCOSE INCREASED [None]
